FAERS Safety Report 6247814-3 (Version None)
Quarter: 2009Q2

REPORT INFORMATION
  Report Type: 
  Country: None (occurrence: None)
  Receive Date: 20090626
  Receipt Date: 20090622
  Transmission Date: 20091009
  Serious: Yes (Other)
  Sender: FDA-Public Use
  Company Number: US-BAYER-200914963NA

PATIENT
  Age: 69 Year
  Sex: Female

DRUGS (1)
  1. AVELOX [Suspect]
     Indication: NASOPHARYNGITIS
     Dates: start: 20090228, end: 20090301

REACTIONS (3)
  - HAEMATOCHEZIA [None]
  - MUSCLE SPASMS [None]
  - PAIN [None]
